FAERS Safety Report 16050534 (Version 1)
Quarter: 2019Q1

REPORT INFORMATION
  Report Type: Spontaneous
  Country: US (occurrence: US)
  Receive Date: 20190207
  Receipt Date: 20190207
  Transmission Date: 20190418
  Serious: Yes (Hospitalization)
  Sender: FDA-Public Use
  Company Number: None

PATIENT
  Age: 72 Year
  Sex: Female
  Weight: 74.03 kg

DRUGS (2)
  1. APIXABAN [Suspect]
     Active Substance: APIXABAN
     Route: 048
     Dates: start: 20190118, end: 20190205
  2. APIXABAN [Concomitant]
     Active Substance: APIXABAN
     Dates: start: 20190205

REACTIONS (3)
  - Hyperkalaemia [None]
  - Fatigue [None]
  - Chronic kidney disease [None]

NARRATIVE: CASE EVENT DATE: 20190206
